FAERS Safety Report 6942338-X (Version None)
Quarter: 2010Q3

REPORT INFORMATION
  Report Type: 
  Country: None (occurrence: None)
  Receive Date: 20100826
  Receipt Date: 20100817
  Transmission Date: 20110219
  Serious: Yes (Other)
  Sender: FDA-Public Use
  Company Number: US-JNJFOC-20100806323

PATIENT
  Sex: Female

DRUGS (1)
  1. REMICADE [Suspect]
     Indication: RHEUMATOID ARTHRITIS
     Route: 042

REACTIONS (7)
  - ALOPECIA [None]
  - ARTHRALGIA [None]
  - BLOOD CALCIUM INCREASED [None]
  - FACE OEDEMA [None]
  - HEPATIC ENZYME INCREASED [None]
  - MYALGIA [None]
  - POLLAKIURIA [None]
